FAERS Safety Report 6523973-X (Version None)
Quarter: 2009Q4

REPORT INFORMATION
  Report Type: 
  Country: None (occurrence: None)
  Receive Date: 20091230
  Receipt Date: 20091230
  Transmission Date: 20100525
  Serious: Yes (Other)
  Sender: FDA-Public Use
  Company Number: None

PATIENT
  Age: 35 Year
  Sex: Female
  Weight: 91 kg

DRUGS (1)
  1. RISPERDAL CONSTA [Suspect]
     Indication: SCHIZOPHRENIA
     Dosage: 50MG ONCE FORTHNIGHTLY IM
     Route: 030
     Dates: start: 20090801, end: 20091229

REACTIONS (3)
  - FEELING ABNORMAL [None]
  - HEADACHE [None]
  - SUICIDAL IDEATION [None]
